FAERS Safety Report 6068350-3 (Version None)
Quarter: 2009Q1

REPORT INFORMATION
  Report Type: 
  Country: None (occurrence: None)
  Receive Date: 20090203
  Receipt Date: 20090122
  Transmission Date: 20090719
  Serious: Yes (Other)
  Sender: FDA-Public Use
  Company Number: 1-17367319

PATIENT
  Age: 64 Year
  Sex: Female

DRUGS (1)
  1. AMIODARONE HCL [Suspect]
     Indication: ARRHYTHMIA PROPHYLAXIS
     Dosage: ORAL
     Route: 048

REACTIONS (5)
  - GENERALISED RESISTANCE TO THYROID HORMONE [None]
  - GOITRE [None]
  - PITUITARY TUMOUR BENIGN [None]
  - THYROXINE FREE INCREASED [None]
  - TRI-IODOTHYRONINE INCREASED [None]
